FAERS Safety Report 13424643 (Version 1)
Quarter: 2017Q2

REPORT INFORMATION
  Report Type: Report from Study
  Country: BR (occurrence: BR)
  Receive Date: 20170410
  Receipt Date: 20170410
  Transmission Date: 20170830
  Serious: Yes (Other)
  Sender: FDA-Public Use
  Company Number: PHHY2017BR052717

PATIENT
  Sex: Female
  Weight: 56 kg

DRUGS (5)
  1. DIOVAN [Suspect]
     Active Substance: VALSARTAN
     Dosage: 160 MG, UNK
     Route: 065
  2. ANCORON [Concomitant]
     Active Substance: AMIODARONE HYDROCHLORIDE
     Indication: CARDIAC DISORDER
     Dosage: 100 MG, QD
     Route: 048
     Dates: start: 201701, end: 201703
  3. DIOVAN [Suspect]
     Active Substance: VALSARTAN
     Indication: HYPERTENSION
     Dosage: 320 MG, QD
     Route: 048
     Dates: end: 201701
  4. DIOVAN [Suspect]
     Active Substance: VALSARTAN
     Dosage: 0.5 DF (320), UNK
     Route: 065
     Dates: end: 201701
  5. VASTAREL [Concomitant]
     Active Substance: TRIMETAZIDINE DIHYDROCHLORIDE
     Indication: CARDIAC DISORDER
     Dosage: UNK UNK, QD
     Route: 048
     Dates: start: 201701

REACTIONS (4)
  - Heart rate decreased [Unknown]
  - Cardiac failure [Unknown]
  - Wrong technique in product usage process [Unknown]
  - Blood pressure decreased [Recovering/Resolving]
